FAERS Safety Report 6167864-5 (Version None)
Quarter: 2009Q2

REPORT INFORMATION
  Report Type: 
  Country: None (occurrence: None)
  Receive Date: 20090427
  Receipt Date: 20090421
  Transmission Date: 20091009
  Serious: Yes (Hospitalization)
  Sender: FDA-Public Use
  Company Number: CN-B.I. PHARMACEUTICALS,INC./RIDGEFIELD-2009-BP-05096YA

PATIENT
  Age: 21 Year
  Sex: Male

DRUGS (2)
  1. HARNAL [Suspect]
     Indication: NEPHROLITHIASIS
     Route: 048
     Dates: start: 20090320, end: 20090320
  2. CEFIXIME CHEWABLE [Concomitant]
     Dates: start: 20090320

REACTIONS (2)
  - ARRHYTHMIA [None]
  - NASAL CONGESTION [None]
